FAERS Safety Report 6543183-X (Version None)
Quarter: 2010Q1

REPORT INFORMATION
  Report Type: 
  Country: None (occurrence: None)
  Receive Date: 20100120
  Receipt Date: 20100118
  Transmission Date: 20100710
  Serious: Yes (Life-Threatening)
  Sender: FDA-Public Use
  Company Number: PL-ASTRAZENECA-2010SE02176

PATIENT
  Age: 63 Year
  Sex: Female
  Weight: 82 kg

DRUGS (1)
  1. MARCAINE [Suspect]
     Indication: ANAESTHESIA
     Route: 037
     Dates: start: 20100114

REACTIONS (1)
  - CIRCULATORY COLLAPSE [None]
